FAERS Safety Report 6899370-4 (Version None)
Quarter: 2010Q3

REPORT INFORMATION
  Report Type: 
  Country: None (occurrence: None)
  Receive Date: 20100803
  Receipt Date: 20090428
  Transmission Date: 20110219
  Serious: No
  Sender: FDA-Public Use
  Company Number: US-PFIZER INC-2009189000

PATIENT
  Sex: Female

DRUGS (1)
  1. FLAGYL [Suspect]
     Dosage: UNK

REACTIONS (1)
  - MALAISE [None]
